FAERS Safety Report 14788787 (Version 4)
Quarter: 2018Q3

REPORT INFORMATION
  Report Type: Spontaneous
  Country: US (occurrence: US)
  Receive Date: 20180423
  Receipt Date: 20180918
  Transmission Date: 20181010
  Serious: Yes (Other)
  Sender: FDA-Public Use
  Company Number: US-BIOGEN-2018BI00556005

PATIENT
  Age: 37 Year
  Sex: Male

DRUGS (1)
  1. SPINRAZA [Suspect]
     Active Substance: NUSINERSEN
     Indication: SPINAL MUSCULAR ATROPHY
     Route: 065
     Dates: start: 20180308

REACTIONS (8)
  - Internal haemorrhage [Recovered/Resolved]
  - Muscular weakness [Unknown]
  - Pneumonia [Unknown]
  - Post procedural contusion [Unknown]
  - Haematoma [Not Recovered/Not Resolved]
  - Vascular injury [Recovered/Resolved]
  - Nerve injury [Recovered/Resolved]
  - Procedural pain [Not Recovered/Not Resolved]

NARRATIVE: CASE EVENT DATE: 20180906
